FAERS Safety Report 6382296-2 (Version None)
Quarter: 2009Q3

REPORT INFORMATION
  Report Type: 
  Country: None (occurrence: None)
  Receive Date: 20090929
  Receipt Date: 20090929
  Transmission Date: 20100115
  Serious: Yes (Hospitalization, Other)
  Sender: FDA-Public Use
  Company Number: None

PATIENT
  Sex: Female
  Weight: 67.1324 kg

DRUGS (2)
  1. YAZ [Suspect]
     Indication: MENSTRUAL CYCLE MANAGEMENT
     Dosage: CYCLE CONTROL  + MOOD SWINGS
     Dates: start: 20060929
  2. YAZ [Suspect]
     Indication: MOOD SWINGS
     Dosage: CYCLE CONTROL  + MOOD SWINGS
     Dates: start: 20060929

REACTIONS (1)
  - ARTERIAL THROMBOSIS LIMB [None]
